FAERS Safety Report 13361643 (Version 2)
Quarter: 2017Q2

REPORT INFORMATION
  Report Type: Spontaneous
  Country: GB (occurrence: GB)
  Receive Date: 20170323
  Receipt Date: 20170626
  Transmission Date: 20170830
  Serious: Yes (Death, Hospitalization, Other)
  Sender: FDA-Public Use
  Company Number: GB-ACCORD-049209

PATIENT
  Age: 67 Year
  Sex: Male

DRUGS (12)
  1. TRAMADOL. [Concomitant]
     Active Substance: TRAMADOL
     Indication: OSTEOARTHRITIS
     Dates: start: 201511
  2. LEVOTHYROXINE. [Concomitant]
     Active Substance: LEVOTHYROXINE
     Indication: HYPOTHYROIDISM
  3. ISOSORBIDE. [Concomitant]
     Active Substance: ISOSORBIDE
  4. OMEPRAZOLE. [Concomitant]
     Active Substance: OMEPRAZOLE
  5. WARFARIN [Interacting]
     Active Substance: WARFARIN
     Indication: CARDIAC DISORDER
     Dates: start: 201606
  6. METOLAZONE. [Interacting]
     Active Substance: METOLAZONE
     Indication: FLUID RETENTION
     Dates: end: 201611
  7. ALLOPURINOL. [Concomitant]
     Active Substance: ALLOPURINOL
     Indication: GOUT
  8. FUROSEMIDE. [Interacting]
     Active Substance: FUROSEMIDE
     Indication: FLUID RETENTION
     Dosage: TWO TABLETS TWICE A DAY
     Dates: start: 201611
  9. GLYCERYL TRINITRATE [Concomitant]
     Active Substance: NITROGLYCERIN
  10. SPIRONOLACTONE. [Suspect]
     Active Substance: SPIRONOLACTONE
     Indication: FLUID RETENTION
     Dosage: STRENGTH: 25 MG?1 TABLET DAILY
     Dates: end: 201611
  11. OMEPRAZOLE. [Concomitant]
     Active Substance: OMEPRAZOLE
  12. ENALAPRIL [Concomitant]
     Active Substance: ENALAPRIL

REACTIONS (14)
  - Sepsis [Fatal]
  - Decreased appetite [Unknown]
  - Respiratory failure [Unknown]
  - Dyspnoea at rest [Not Recovered/Not Resolved]
  - Muscle spasms [Unknown]
  - Orthopnoea [Not Recovered/Not Resolved]
  - Drug interaction [Unknown]
  - Therapeutic response decreased [Unknown]
  - Nausea [Unknown]
  - Rash [Unknown]
  - Asthenia [Unknown]
  - Urine output decreased [Unknown]
  - Lethargy [Unknown]
  - Acute kidney injury [Unknown]

NARRATIVE: CASE EVENT DATE: 201611
